FAERS Safety Report 4717981-9 (Version None)
Quarter: 2005Q3

REPORT INFORMATION
  Report Type: 
  Country: None (occurrence: None)
  Receive Date: 20050718
  Receipt Date: 20050215
  Transmission Date: 20060218
  Serious: No
  Sender: FDA-Public Use
  Company Number: 2005000356

PATIENT
  Age: 75 Year
  Sex: Male
  Weight: 68.0396 kg

DRUGS (5)
  1. TARCEVA [Suspect]
     Indication: NON-SMALL CELL LUNG CANCER
     Dosage: 150 MG (QD), ORAL
     Route: 048
     Dates: start: 20050213
  2. LEXAPRO [Concomitant]
  3. OXYCONTIN [Concomitant]
  4. PAIN MEDICATIONS [Concomitant]
  5. FOOD SUPPLEMENTS [Concomitant]

REACTIONS (1)
  - HOT FLUSH [None]
